FAERS Safety Report 26171292 (Version 3)
Quarter: 2025Q4

REPORT INFORMATION
  Report Type: Report from Study
  Country: RU (occurrence: RU)
  Receive Date: 20251217
  Receipt Date: 20251230
  Transmission Date: 20260119
  Serious: Yes (Hospitalization)
  Sender: EISAI
  Company Number: RU-Eisai-EC-2025-201757

PATIENT
  Age: 75 Year
  Sex: Male
  Weight: 60 kg

DRUGS (12)
  1. LENVATINIB [Suspect]
     Active Substance: LENVATINIB
     Indication: Renal cell carcinoma
     Route: 048
     Dates: start: 202503, end: 20250426
  2. LENVATINIB [Suspect]
     Active Substance: LENVATINIB
     Route: 048
     Dates: start: 20250515, end: 20250804
  3. PREDNISOLONE [Concomitant]
     Active Substance: PREDNISOLONE
     Indication: Rash
     Route: 048
     Dates: start: 202506, end: 20250722
  4. PREDNISOLONE [Concomitant]
     Active Substance: PREDNISOLONE
     Indication: Pruritus
     Dates: start: 202508
  5. PREDNISOLONE [Concomitant]
     Active Substance: PREDNISOLONE
     Indication: Skin toxicity
  6. PEMBROLIZUMAB [Concomitant]
     Active Substance: PEMBROLIZUMAB
     Indication: Renal cell carcinoma
     Route: 042
     Dates: start: 202503, end: 20250427
  7. PEMBROLIZUMAB [Concomitant]
     Active Substance: PEMBROLIZUMAB
     Route: 042
     Dates: start: 20250607, end: 20250607
  8. AKRIDERM [Concomitant]
     Indication: Rash
     Dosage: DOSE AD FREQUENCY UNKNOWN
  9. AKRIDERM [Concomitant]
     Indication: Pruritus
  10. CHLORHEXIDINE [Concomitant]
     Active Substance: CHLORHEXIDINE
     Indication: Skin toxicity
     Dosage: DOSE AND FREQUENCY UNKNOWN
     Route: 062
  11. DICLOFENAC [Concomitant]
     Active Substance: DICLOFENAC
     Indication: Skin toxicity
     Dosage: DOSE AND FREQUENCY UNKNOWN
  12. PANTENOL [Concomitant]
     Indication: Skin toxicity
     Dosage: DOSE AND FREQUENCY UNKNOWN

REACTIONS (9)
  - Chronic kidney disease [Recovering/Resolving]
  - Hypotension [Recovering/Resolving]
  - Toxicity to various agents [Recovering/Resolving]
  - Skin toxicity [Recovered/Resolved with Sequelae]
  - Rash [Recovered/Resolved with Sequelae]
  - Pruritus [Recovered/Resolved with Sequelae]
  - Gastrointestinal toxicity [Recovering/Resolving]
  - Asthenia [Recovering/Resolving]
  - Blood glucose increased [Unknown]

NARRATIVE: CASE EVENT DATE: 20250401
